FAERS Safety Report 20443213 (Version 1)
Quarter: 2022Q1

REPORT INFORMATION
  Report Type: Spontaneous
  Country: DE (occurrence: DE)
  Receive Date: 20220208
  Receipt Date: 20220208
  Transmission Date: 20220423
  Serious: Yes (Congenital Anomaly, Other)
  Sender: FDA-Public Use
  Company Number: None

PATIENT
  Age: 1 Day
  Sex: Female
  Weight: 2 kg

DRUGS (3)
  1. DULOXETINE [Suspect]
     Active Substance: DULOXETINE
     Indication: Neuralgia
     Dosage: 60 [MG/D ]
     Route: 064
     Dates: start: 20200612, end: 20210322
  2. AMITRIPTYLINE [Concomitant]
     Active Substance: AMITRIPTYLINE
     Indication: Neuralgia
     Dosage: 10 [MG/D ]
     Route: 064
     Dates: start: 20200612, end: 20210322
  3. PREGABALIN [Suspect]
     Active Substance: PREGABALIN
     Indication: Trigeminal neuralgia
     Dosage: 200 [MG/D ]
     Route: 064
     Dates: start: 20200612, end: 20210322

REACTIONS (3)
  - Naevus flammeus [Unknown]
  - Foetal exposure during pregnancy [Unknown]
  - Telangiectasia congenital [Unknown]

NARRATIVE: CASE EVENT DATE: 20210301
